FAERS Safety Report 5730131-5 (Version None)
Quarter: 2008Q2

REPORT INFORMATION
  Report Type: 
  Country: None (occurrence: None)
  Receive Date: 20080507
  Receipt Date: 20080425
  Transmission Date: 20081010
  Serious: Yes (Other)
  Sender: FDA-Public Use
  Company Number: US-ROCHE-548698

PATIENT
  Sex: Female
  Weight: 52.2 kg

DRUGS (4)
  1. ACCUTANE [Suspect]
     Indication: ACNE
     Route: 065
     Dates: start: 19950330, end: 19950901
  2. ACCUTANE [Suspect]
     Route: 065
     Dates: start: 19981020, end: 19990325
  3. ORTHO TRI-CYCLEN [Concomitant]
     Route: 065
  4. ORTHO TRI-CYCLEN [Concomitant]
     Route: 065

REACTIONS (12)
  - ANXIETY [None]
  - COLITIS [None]
  - COLITIS ULCERATIVE [None]
  - DEPRESSION [None]
  - DYSPEPSIA [None]
  - FOOT FRACTURE [None]
  - GALLBLADDER DISORDER [None]
  - HERPES VIRUS INFECTION [None]
  - HYPERTENSION [None]
  - INFLAMMATORY BOWEL DISEASE [None]
  - SINUS DISORDER [None]
  - TONSILLECTOMY [None]
